FAERS Safety Report 19000494 (Version 3)
Quarter: 2021Q3

REPORT INFORMATION
  Report Type: Spontaneous
  Country: TH (occurrence: TH)
  Receive Date: 20210311
  Receipt Date: 20210707
  Transmission Date: 20211014
  Serious: Yes (Hospitalization)
  Sender: FDA-Public Use
  Company Number: TH-BAUSCH-BL-2021-007311

PATIENT
  Age: 22 Year
  Sex: Female

DRUGS (2)
  1. LUMICEF [Suspect]
     Active Substance: BRODALUMAB
     Indication: PUSTULAR PSORIASIS
     Dosage: SYRINGE
     Route: 058
     Dates: start: 20200311
  2. LUMICEF [Suspect]
     Active Substance: BRODALUMAB
     Dosage: SAME DOSE GIVEN
     Route: 058

REACTIONS (2)
  - Pyrexia [Recovered/Resolved]
  - Pustular psoriasis [Not Recovered/Not Resolved]
